FAERS Safety Report 17413233 (Version 2)
Quarter: 2020Q1

REPORT INFORMATION
  Report Type: Spontaneous
  Country: US (occurrence: US)
  Receive Date: 20200213
  Receipt Date: 20200302
  Transmission Date: 20200409
  Serious: No
  Sender: FDA-Public Use
  Company Number: US-TEVA-2020-US-1183113

PATIENT
  Sex: Male

DRUGS (1)
  1. DIAZEPAM. [Suspect]
     Active Substance: DIAZEPAM
     Indication: ANXIETY
     Dosage: FROM LAST 2 YEARS
     Route: 065
     Dates: start: 2018

REACTIONS (1)
  - Drug ineffective [Unknown]

NARRATIVE: CASE EVENT DATE: 2019
